FAERS Safety Report 23475485 (Version 1)
Quarter: 2024Q1

REPORT INFORMATION
  Report Type: Report from Study
  Country: US (occurrence: US)
  Receive Date: 20240204
  Receipt Date: 20240204
  Transmission Date: 20240410
  Serious: No
  Sender: FDA-Public Use
  Company Number: US-EXELIXIS-CABO-23059783

PATIENT
  Sex: Female
  Weight: 44.989 kg

DRUGS (4)
  1. CABOMETYX [Suspect]
     Active Substance: CABOZANTINIB S-MALATE
     Indication: Renal cell carcinoma stage IV
     Dosage: 20 MG, QD
     Route: 048
     Dates: start: 20221221, end: 202304
  2. CABOMETYX [Suspect]
     Active Substance: CABOZANTINIB S-MALATE
     Dosage: 20 MG, QD
     Route: 048
  3. HYDROCODONE BITARTRATE AND ACETAMINOPHEN [Suspect]
     Active Substance: ACETAMINOPHEN\HYDROCODONE BITARTRATE
     Indication: Pain
     Dosage: UNK
  4. NALOXONE [Concomitant]
     Active Substance: NALOXONE
     Dosage: UNK

REACTIONS (10)
  - Muscular weakness [Unknown]
  - Immune system disorder [Unknown]
  - Somnolence [Unknown]
  - Blood pressure decreased [Unknown]
  - Asthenia [Not Recovered/Not Resolved]
  - Blood potassium decreased [Unknown]
  - Dizziness [Unknown]
  - Fatigue [Unknown]
  - Dry skin [Unknown]
  - Constipation [Recovering/Resolving]
